FAERS Safety Report 9190407 (Version 2)
Quarter: 2012Q4

REPORT INFORMATION
  Report Type: 
  Country: US (occurrence: US)
  Receive Date: 20121218
  Receipt Date: 20121219
  Transmission Date: 20130627
  Serious: Yes (Other)
  Sender: FDA-Public Use
  Company Number: US-RB-047656-12

PATIENT
  Age: 41 Year
  Sex: Male

DRUGS (2)
  1. MUCINEX DM (GUAIFENESIN) [Suspect]
     Indication: COUGH
     Dosage: Took one tablet only
     Route: 048
     Dates: start: 20121210
  2. MUCINEX DM (DEXTROMETHORPHAN HYDROBROMIDE) [Suspect]

REACTIONS (9)
  - Syncope [Unknown]
  - Pruritus [Unknown]
  - Hyperhidrosis [Unknown]
  - Balance disorder [Unknown]
  - Urticaria [Unknown]
  - Vomiting [Unknown]
  - Rash [Unknown]
  - Nausea [Unknown]
  - Dizziness [Unknown]
